FAERS Safety Report 13693747 (Version 1)
Quarter: 2017Q2

REPORT INFORMATION
  Report Type: Spontaneous
  Country: US (occurrence: US)
  Receive Date: 20170626
  Receipt Date: 20170626
  Transmission Date: 20170830
  Serious: Yes (Hospitalization)
  Sender: FDA-Public Use
  Company Number: None

PATIENT
  Age: 37 Year
  Sex: Male

DRUGS (9)
  1. LEVETIRACETAM. [Concomitant]
     Active Substance: LEVETIRACETAM
  2. FISH OIL [Concomitant]
     Active Substance: FISH OIL
  3. GABLOFEN [Suspect]
     Active Substance: BACLOFEN
     Indication: CEREBRAL PALSY
     Dosage: 522.4MCG DAILY INTRATHECAL
     Route: 037
     Dates: start: 20130814
  4. LATANOPROST. [Concomitant]
     Active Substance: LATANOPROST
  5. HYDROCHLOROTHIAZIDE. [Concomitant]
     Active Substance: HYDROCHLOROTHIAZIDE
  6. VITAMIN D3 [Concomitant]
     Active Substance: CHOLECALCIFEROL
  7. KEPPRA [Concomitant]
     Active Substance: LEVETIRACETAM
  8. PROZAC [Concomitant]
     Active Substance: FLUOXETINE HYDROCHLORIDE
  9. NIFEDICAL XL [Concomitant]
     Active Substance: NIFEDIPINE

REACTIONS (1)
  - Seizure [None]

NARRATIVE: CASE EVENT DATE: 20170623
